FAERS Safety Report 7580367-6 (Version None)
Quarter: 2011Q2

REPORT INFORMATION
  Report Type: 
  Country: None (occurrence: None)
  Receive Date: 20110629
  Receipt Date: 20110620
  Transmission Date: 20111010
  Serious: Yes (Other)
  Sender: FDA-Public Use
  Company Number: JP-ROCHE-785112

PATIENT
  Age: 60 Year
  Sex: Female

DRUGS (2)
  1. RIBAVIRIN [Suspect]
     Dosage: DISCONTINUED.
     Route: 065
  2. PEG-INTRON [Suspect]
     Dosage: DISCONTINUED.
     Route: 065

REACTIONS (1)
  - VOGT-KOYANAGI-HARADA SYNDROME [None]
